FAERS Safety Report 9001395 (Version 1)
Quarter: 2013Q1

REPORT INFORMATION
  Report Type: Spontaneous
  Country: US (occurrence: US)
  Receive Date: 20130107
  Receipt Date: 20130107
  Transmission Date: 20140127
  Serious: Yes (Other)
  Sender: FDA-Public Use
  Company Number: US-009507513-1301USA002112

PATIENT
  Sex: Female

DRUGS (4)
  1. SINGULAIR [Suspect]
  2. VIANI FORTE [Suspect]
     Dosage: 1 PUFF, TID
     Route: 055
  3. BERODUAL [Suspect]
     Route: 055
  4. XOLAIR [Suspect]
     Route: 042

REACTIONS (6)
  - Speech disorder [Unknown]
  - Increased upper airway secretion [Unknown]
  - Dysphonia [Unknown]
  - Drug ineffective [Unknown]
  - Chest discomfort [Unknown]
  - Asthma [Unknown]
